FAERS Safety Report 23340163 (Version 1)
Quarter: 2023Q4

REPORT INFORMATION
  Report Type: Spontaneous
  Country: US (occurrence: US)
  Receive Date: 20231227
  Receipt Date: 20231227
  Transmission Date: 20240110
  Serious: No
  Sender: FDA-Public Use
  Company Number: US-SA-SAC20231218001451

PATIENT
  Age: 3 Year
  Sex: Male

DRUGS (1)
  1. DUPIXENT [Suspect]
     Active Substance: DUPILUMAB
     Indication: Dermatitis atopic
     Dosage: 200MG FREQUENCY- EVERY 4 WEEKS
     Route: 058

REACTIONS (9)
  - Dermatitis atopic [Unknown]
  - Eczema [Unknown]
  - Erythema [Unknown]
  - Pruritus [Unknown]
  - Dry skin [Unknown]
  - Skin fissures [Unknown]
  - Dermatitis [Unknown]
  - Therapeutic response shortened [Unknown]
  - Inappropriate schedule of product administration [Unknown]

NARRATIVE: CASE EVENT DATE: 20231201
